FAERS Safety Report 24141498 (Version 1)
Quarter: 2024Q3

REPORT INFORMATION
  Report Type: Spontaneous
  Country: PL (occurrence: PL)
  Receive Date: 20240726
  Receipt Date: 20240726
  Transmission Date: 20241017
  Serious: Yes (Hospitalization)
  Sender: RANBAXY
  Company Number: PL-SUN PHARMACEUTICAL INDUSTRIES LTD-2024RR-458923

PATIENT
  Age: 17 Year
  Sex: Female
  Weight: 53 kg

DRUGS (1)
  1. OLANZAPINE [Suspect]
     Active Substance: OLANZAPINE
     Indication: Product used for unknown indication
     Dosage: 28 X 10 MG
     Route: 048
     Dates: start: 20220315, end: 20220315

REACTIONS (3)
  - Confusional state [Unknown]
  - Suicide attempt [Unknown]
  - Disorientation [Unknown]

NARRATIVE: CASE EVENT DATE: 20220315
